FAERS Safety Report 18898517 (Version 1)
Quarter: 2021Q1

REPORT INFORMATION
  Report Type: Spontaneous
  Country: DE (occurrence: DE)
  Receive Date: 20210216
  Receipt Date: 20210216
  Transmission Date: 20210420
  Serious: Yes (Hospitalization, Other)
  Sender: FDA-Public Use
  Company Number: DE-TEVA-2021-DE-1879374

PATIENT
  Age: 7 Year
  Sex: Male
  Weight: 22 kg

DRUGS (6)
  1. OXCARBAZEPIN [Concomitant]
     Active Substance: OXCARBAZEPINE
  2. LAMOTRIGIN [Concomitant]
     Active Substance: LAMOTRIGINE
  3. OMEPRAZOL [Concomitant]
     Active Substance: OMEPRAZOLE
  4. VITAMIN D [Concomitant]
     Active Substance: VITAMIN D NOS
  5. VALPROAT [Suspect]
     Active Substance: VALPROATE SODIUM
     Indication: IDIOPATHIC GENERALISED EPILEPSY
     Dosage: DAILY DOSE: 1080 MG MILLGRAM(S) EVERY DAYS 2 SEPARATED DOSES , UNIT DOSE : 1080 MG
     Route: 048
     Dates: start: 20150209
  6. DRONABINOL. [Concomitant]
     Active Substance: DRONABINOL

REACTIONS (4)
  - Product prescribing error [Recovered/Resolved]
  - Anticonvulsant drug level decreased [Recovered/Resolved]
  - Prescribed underdose [Recovered/Resolved]
  - Epilepsy [Recovered/Resolved]

NARRATIVE: CASE EVENT DATE: 20200114
